FAERS Safety Report 7878458-5 (Version None)
Quarter: 2011Q4

REPORT INFORMATION
  Report Type: 
  Country: None (occurrence: None)
  Receive Date: 20111028
  Receipt Date: 20111014
  Transmission Date: 20120403
  Serious: Yes (Hospitalization, Disabling, Other)
  Sender: FDA-Public Use
  Company Number: 2010MA002817

PATIENT
  Sex: Female
  Weight: 76.2043 kg

DRUGS (27)
  1. LOVASTATIN [Concomitant]
  2. CRESTOR [Concomitant]
  3. OXYCODONE HCL AND ACETAMINOPHEN [Concomitant]
  4. PROCHLOROPERAZINE [Concomitant]
  5. ASPIRIN [Concomitant]
  6. BENICAR [Concomitant]
  7. PREVACID [Concomitant]
  8. CYMBALTA [Concomitant]
  9. NAPROXEN [Concomitant]
  10. PLAVIX [Concomitant]
  11. KLONOPIN [Concomitant]
  12. ANTIBIOTICS [Concomitant]
  13. ATENOLOL [Concomitant]
  14. CARVEDILOL [Concomitant]
  15. CITALOPRAM [Concomitant]
  16. ENALAPRIL MALEATE [Concomitant]
  17. NEXIUM [Concomitant]
  18. METOCLOPRAMIDE [Suspect]
     Indication: IMPAIRED GASTRIC EMPTYING
     Dosage: 10 MG;QID;PO
     Route: 048
     Dates: start: 20040101, end: 20090201
  19. CIPOFLOXACIN [Concomitant]
  20. HYDROCHLOROTHIAZIDE [Concomitant]
  21. MIRTAZAPINE [Concomitant]
  22. CORTISON INJECTION [Concomitant]
  23. AMBIEN [Concomitant]
  24. ISOSORBIDE DINITRATE [Concomitant]
  25. NIFEDICAL [Concomitant]
  26. GABAPENTIN [Concomitant]
  27. LYRICA [Concomitant]

REACTIONS (24)
  - PROTRUSION TONGUE [None]
  - DEHYDRATION [None]
  - BLOOD CHOLESTEROL INCREASED [None]
  - CEREBRAL ARTERY OCCLUSION [None]
  - CEREBROVASCULAR ACCIDENT [None]
  - URINARY TRACT INFECTION [None]
  - CAROTID ENDARTERECTOMY [None]
  - INCORRECT DRUG ADMINISTRATION DURATION [None]
  - ORAL PAIN [None]
  - ULCER [None]
  - DYSARTHRIA [None]
  - BURSITIS [None]
  - TRIGEMINAL NEURALGIA [None]
  - GAIT DISTURBANCE [None]
  - TARDIVE DYSKINESIA [None]
  - SPEECH DISORDER [None]
  - BLISTER [None]
  - FALL [None]
  - CEREBRAL INFARCTION [None]
  - ASTHENIA [None]
  - TOXIC ENCEPHALOPATHY [None]
  - HEMIPARESIS [None]
  - UPPER RESPIRATORY TRACT INFECTION [None]
  - WALKING AID USER [None]
